FAERS Safety Report 18220377 (Version 3)
Quarter: 2020Q3

REPORT INFORMATION
  Report Type: Spontaneous
  Country: US (occurrence: US)
  Receive Date: 20200902
  Receipt Date: 20200908
  Transmission Date: 20201103
  Serious: Yes (Other)
  Sender: FDA-Public Use
  Company Number: US-VIFOR (INTERNATIONAL) INC.-VIT-2020-09046

PATIENT
  Age: 69 Year
  Sex: Male
  Weight: 72 kg

DRUGS (30)
  1. COUMADIN [Concomitant]
     Active Substance: WARFARIN SODIUM
     Route: 048
     Dates: start: 20200802, end: 20200803
  2. CLONIDINE. [Concomitant]
     Active Substance: CLONIDINE
     Dosage: HOLD IF SBP IS LESS THAN 120 OR HR LESS THAN 60
     Route: 048
     Dates: start: 20200730, end: 20200829
  3. KEPPRA [Concomitant]
     Active Substance: LEVETIRACETAM
     Route: 048
     Dates: start: 20200731, end: 20200803
  4. VENOFER [Concomitant]
     Active Substance: IRON SUCROSE
     Dosage: SLOW PUSH OVER 5 MINUTES
     Route: 040
     Dates: start: 20200801, end: 20200804
  5. NIFEDIPINE. [Concomitant]
     Active Substance: NIFEDIPINE
     Dosage: EXTENDED RELEASE
     Route: 048
     Dates: start: 20200730, end: 20200829
  6. CHOLECALCIFEROL [Concomitant]
     Active Substance: CHOLECALCIFEROL
     Route: 048
     Dates: start: 20200703
  7. LEVETIRACETAM. [Concomitant]
     Active Substance: LEVETIRACETAM
     Route: 048
  8. MIRCERA [Suspect]
     Active Substance: METHOXY POLYETHYLENE GLYCOL-EPOETIN BETA
     Dates: start: 20200515
  9. CARVEDILOL. [Concomitant]
     Active Substance: CARVEDILOL
     Dosage: HOLD IF SBP IS LESS THAN 120 OR HR LESS THAN 60
     Route: 048
     Dates: start: 20200729, end: 20200828
  10. LEVETIRACETAM. [Concomitant]
     Active Substance: LEVETIRACETAM
     Dosage: ON DIALYSIS DAYS
     Route: 048
  11. ONDANSETRON [Concomitant]
     Active Substance: ONDANSETRON
     Route: 041
  12. MIRCERA [Suspect]
     Active Substance: METHOXY POLYETHYLENE GLYCOL-EPOETIN BETA
     Route: 040
     Dates: start: 20200522
  13. ARY SALINE MIST [Concomitant]
     Dates: start: 20200731, end: 20200830
  14. PROSTAT [Concomitant]
     Dosage: LIQUID
     Route: 048
     Dates: start: 20200730, end: 20200829
  15. SODIUM CHLORIDE. [Concomitant]
     Active Substance: SODIUM CHLORIDE
     Indication: BALANCE DISORDER
  16. ZOFRAN [Concomitant]
     Active Substance: ONDANSETRON HYDROCHLORIDE
     Indication: NAUSEA
     Route: 040
     Dates: start: 20200730, end: 20200829
  17. ZOFRAN [Concomitant]
     Active Substance: ONDANSETRON HYDROCHLORIDE
     Indication: VOMITING
  18. MIRCERA [Suspect]
     Active Substance: METHOXY POLYETHYLENE GLYCOL-EPOETIN BETA
     Indication: HAEMOGLOBIN DECREASED
     Dates: start: 2020
  19. NEPHROCAPS [Concomitant]
     Active Substance: ASCORBIC ACID\BIOTIN\CYANOCOBALAMIN\FOLIC ACID\NIACIN\PANTOTHENIC ACID\PYRIDOXINE\RIBOFLAVIN\THIAMINE
     Route: 048
     Dates: start: 20200730, end: 20200829
  20. SODIUM CHLORIDE. [Concomitant]
     Active Substance: SODIUM CHLORIDE
     Indication: MUSCLE SPASMS
     Route: 040
  21. ATORVASTATIN [Concomitant]
     Active Substance: ATORVASTATIN
     Dosage: BEDTIME
     Route: 048
     Dates: start: 20200730, end: 20200829
  22. ISOSORBIDE DINITRATE. [Concomitant]
     Active Substance: ISOSORBIDE DINITRATE
     Dosage: HOLD IF SBP IS LESS THAN 120
     Route: 048
     Dates: start: 20200730, end: 20200829
  23. LIDOCAINE. [Concomitant]
     Active Substance: LIDOCAINE
     Indication: BIOPSY BONE MARROW
     Dates: start: 20200729
  24. OMEPRAZOLE. [Concomitant]
     Active Substance: OMEPRAZOLE
     Dosage: DELAYED RELEASE CAPSULE
     Route: 048
     Dates: start: 20200729
  25. MIRCERA [Suspect]
     Active Substance: METHOXY POLYETHYLENE GLYCOL-EPOETIN BETA
     Dates: start: 20200803
  26. MELATONIN [Concomitant]
     Active Substance: MELATONIN
     Indication: INSOMNIA
     Dosage: BEDTIME
     Route: 048
     Dates: start: 20200731, end: 20200830
  27. NORMAL SALINE FLUSH [Concomitant]
     Active Substance: SODIUM CHLORIDE
     Route: 040
     Dates: start: 20200729, end: 20200828
  28. ACETAMINOPHEN. [Concomitant]
     Active Substance: ACETAMINOPHEN
     Indication: PAIN
     Route: 048
     Dates: start: 20200801, end: 20200831
  29. PANTOPRAZOLE [Concomitant]
     Active Substance: PANTOPRAZOLE
     Route: 048
     Dates: start: 20200730, end: 20200829
  30. RENO CAPS [Concomitant]
     Active Substance: ASCORBIC ACID\BIOTIN\CYANOCOBALAMIN\FOLIC ACID\NIACIN\PANTOTHENIC ACID\PYRIDOXINE\RIBOFLAVIN\THIAMINE
     Route: 048

REACTIONS (16)
  - Gastrointestinal disorder [Unknown]
  - Nodule [Unknown]
  - Neoplasm [Unknown]
  - Anaemia [Unknown]
  - Nausea [Unknown]
  - Metastatic neoplasm [Unknown]
  - Haematoma [Unknown]
  - Lymphadenopathy [Unknown]
  - Gallbladder disorder [Unknown]
  - Hypophagia [Unknown]
  - Faeces discoloured [Unknown]
  - Gallbladder enlargement [Unknown]
  - Blood iron decreased [Unknown]
  - Haemoglobin decreased [Unknown]
  - Aplasia pure red cell [Unknown]
  - Liver disorder [Unknown]

NARRATIVE: CASE EVENT DATE: 2020
